FAERS Safety Report 7771537-2 (Version None)
Quarter: 2011Q3

REPORT INFORMATION
  Report Type: 
  Country: None (occurrence: None)
  Receive Date: 20110922
  Receipt Date: 20101026
  Transmission Date: 20111222
  Serious: Yes (Hospitalization, Other)
  Sender: FDA-Public Use
  Company Number: US-ASTRAZENECA-2007UW09682

PATIENT
  Age: 44 Year
  Sex: Female
  Weight: 103.4 kg

DRUGS (21)
  1. ZYPREXA [Concomitant]
     Dates: start: 20030201, end: 20030201
  2. ZOLOFT [Concomitant]
  3. COUMADIN [Concomitant]
     Route: 048
     Dates: start: 20060328
  4. SEROQUEL [Suspect]
     Indication: DEPRESSION
     Route: 048
     Dates: start: 20020101
  5. SEROQUEL [Suspect]
     Dosage: 100 MG
     Route: 048
     Dates: start: 20040601, end: 20050901
  6. WELLBUTRIN [Concomitant]
  7. SEROQUEL [Suspect]
     Dosage: 100 MG
     Route: 048
     Dates: start: 20040601, end: 20050901
  8. ZYPREXA [Concomitant]
     Dosage: 5 MG
     Dates: start: 20020101
  9. SEROQUEL [Suspect]
     Indication: POST-TRAUMATIC STRESS DISORDER
     Route: 048
     Dates: start: 20020101
  10. SEROQUEL [Suspect]
     Dosage: 100 MG 6 TAB QHS, 600 MG DAILY, 100 MG QHS, 100 MG BID
     Route: 048
     Dates: start: 20031223
  11. SEROQUEL [Suspect]
     Dosage: 100 MG 6 TAB QHS, 600 MG DAILY, 100 MG QHS, 100 MG BID
     Route: 048
     Dates: start: 20031223
  12. SEROQUEL [Suspect]
     Dosage: 100 MG 6 TAB QHS, 600 MG DAILY, 100 MG QHS, 100 MG BID
     Route: 048
     Dates: start: 20031223
  13. SEROQUEL [Suspect]
     Dosage: 100 MG
     Route: 048
     Dates: start: 20040601, end: 20050901
  14. SEROQUEL [Suspect]
     Dosage: 100 MG
     Route: 048
     Dates: start: 20060401
  15. SEROQUEL [Suspect]
     Indication: BIPOLAR DISORDER
     Route: 048
     Dates: start: 20020101
  16. SEROQUEL [Suspect]
     Dosage: 100 MG
     Route: 048
     Dates: start: 20060401
  17. SEROQUEL [Suspect]
     Dosage: 100 MG
     Route: 048
     Dates: start: 20060401
  18. METFORMIN [Concomitant]
     Route: 048
     Dates: start: 20040713
  19. SOMA [Concomitant]
     Route: 065
     Dates: start: 20070123
  20. CELEBREX [Concomitant]
     Dosage: 200 MG ONCE DAILY, 100 MG QD
     Route: 048
     Dates: start: 20041109
  21. PROZAC [Concomitant]

REACTIONS (6)
  - TYPE 2 DIABETES MELLITUS [None]
  - PANCREATITIS ACUTE [None]
  - DEEP VEIN THROMBOSIS [None]
  - BLOOD CHOLESTEROL INCREASED [None]
  - OBESITY [None]
  - HYPERLIPIDAEMIA [None]
